FAERS Safety Report 9524288 (Version 1)
Quarter: 2013Q3

REPORT INFORMATION
  Report Type: Spontaneous
  Country: US (occurrence: None)
  Receive Date: 20130912
  Receipt Date: 20130912
  Transmission Date: 20140515
  Serious: Yes (Hospitalization, Disabling)
  Sender: FDA-Public Use
  Company Number: None

PATIENT
  Age: 58 Year
  Sex: Female

DRUGS (7)
  1. CRESTOR [Suspect]
     Indication: BLOOD CHOLESTEROL INCREASED
     Route: 048
     Dates: start: 201208, end: 20130719
  2. ZETIA [Suspect]
     Indication: BLOOD CHOLESTEROL INCREASED
     Route: 048
  3. LEVOTHYROXINE [Concomitant]
  4. ETODOLAC [Concomitant]
  5. OMEPRAZOLE [Concomitant]
  6. FISH OILS PILLS [Concomitant]
  7. LORATADINE [Concomitant]

REACTIONS (1)
  - Rhabdomyolysis [None]
